FAERS Safety Report 15499131 (Version 1)
Quarter: 2018Q4

REPORT INFORMATION
  Report Type: Report from Study
  Country: CO (occurrence: CO)
  Receive Date: 20181015
  Receipt Date: 20181015
  Transmission Date: 20190205
  Serious: Yes (Hospitalization, Other)
  Sender: FDA-Public Use
  Company Number: CO-BAYER-2018-088812

PATIENT
  Age: 45 Year
  Sex: Male

DRUGS (3)
  1. NEXAVAR [Suspect]
     Active Substance: SORAFENIB
     Indication: POORLY DIFFERENTIATED THYROID CARCINOMA
     Dosage: 1 TABLET IN THE MORNING, 1 TABLET AT NIGHT
     Dates: start: 20180907, end: 20181005
  2. VALPROIC ACID. [Concomitant]
     Active Substance: VALPROIC ACID
  3. NEXAVAR [Suspect]
     Active Substance: SORAFENIB
     Indication: THYROID CANCER
     Dosage: 400 MG, BID
     Route: 048
     Dates: start: 20170913, end: 20180125

REACTIONS (10)
  - Seizure [None]
  - Gastrostomy [Unknown]
  - Cardio-respiratory arrest [None]
  - Metastases to central nervous system [Not Recovered/Not Resolved]
  - Bronchoscopy [None]
  - Procedural complication [Not Recovered/Not Resolved]
  - Tracheostomy [Unknown]
  - Product prescribing error [None]
  - Respiratory arrest [Not Recovered/Not Resolved]
  - Vomiting [Not Recovered/Not Resolved]

NARRATIVE: CASE EVENT DATE: 20180420
